FAERS Safety Report 6339265-8 (Version None)
Quarter: 2009Q3

REPORT INFORMATION
  Report Type: 
  Country: None (occurrence: None)
  Receive Date: 20090903
  Receipt Date: 20090828
  Transmission Date: 20100115
  Serious: Yes (Disabling, Other)
  Sender: FDA-Public Use
  Company Number: A0800139A

PATIENT
  Age: 38 Year
  Sex: Female
  Weight: 90.9 kg

DRUGS (1)
  1. WELLBUTRIN [Suspect]
     Indication: DEPRESSION
     Route: 048

REACTIONS (3)
  - MUSCLE SPASMS [None]
  - ROAD TRAFFIC ACCIDENT [None]
  - TORTICOLLIS [None]
